FAERS Safety Report 5511207-4 (Version None)
Quarter: 2007Q4

REPORT INFORMATION
  Report Type: 
  Country: None (occurrence: None)
  Receive Date: 20071109
  Receipt Date: 20071031
  Transmission Date: 20080405
  Serious: No
  Sender: FDA-Public Use
  Company Number: -BAXTER-2007BH008763

PATIENT
  Age: 52 Year
  Sex: Male
  Weight: 70 kg

DRUGS (3)
  1. SODIUM CHLORIDE 0.9% IN PLASTIC CONTAINER [Suspect]
     Indication: ARTHROPATHY
     Route: 042
     Dates: start: 20070801, end: 20070801
  2. LIGNOCAINE HYDROCHLORIDE [Suspect]
     Indication: DRUG USE FOR UNKNOWN INDICATION
     Dates: start: 20070801, end: 20070801
  3. DIPROFOS [Concomitant]

REACTIONS (1)
  - SYNCOPE [None]
